FAERS Safety Report 6636099-1 (Version None)
Quarter: 2010Q1

REPORT INFORMATION
  Report Type: 
  Country: None (occurrence: None)
  Receive Date: 20100316
  Receipt Date: 20100310
  Transmission Date: 20100710
  Serious: Yes (Life-Threatening, Hospitalization)
  Sender: FDA-Public Use
  Company Number: NL-CELGENEUS-114-21880-10030951

PATIENT
  Sex: Female
  Weight: 70 kg

DRUGS (7)
  1. REVLIMID [Suspect]
     Indication: MULTIPLE MYELOMA
     Route: 048
     Dates: start: 20100222, end: 20100308
  2. DEXAMETHASONE [Suspect]
     Indication: MULTIPLE MYELOMA
     Route: 065
     Dates: start: 20100222, end: 20100308
  3. AMITRIPTYLINE HCL [Suspect]
     Indication: MULTIPLE MYELOMA
     Route: 065
  4. FENTANYL [Suspect]
     Indication: MULTIPLE MYELOMA
     Route: 065
  5. LYRICA [Suspect]
     Indication: MULTIPLE MYELOMA
     Route: 065
  6. NEO RECORMON [Suspect]
     Indication: MULTIPLE MYELOMA
     Route: 065
  7. MIRTAZAPINE [Suspect]
     Indication: MULTIPLE MYELOMA
     Route: 065

REACTIONS (1)
  - INTESTINAL PERFORATION [None]
